FAERS Safety Report 10109741 (Version 4)
Quarter: 2016Q4

REPORT INFORMATION
  Report Type: Report from Study
  Country: TW (occurrence: TW)
  Receive Date: 20140425
  Receipt Date: 20161014
  Transmission Date: 20170206
  Serious: Yes (Hospitalization, Disabling)
  Sender: FDA-Public Use
  Company Number: PHHO2014TW004689

PATIENT
  Age: 58 Year
  Sex: Female
  Weight: 62 kg

DRUGS (5)
  1. ZOMETA [Suspect]
     Active Substance: ZOLEDRONIC ACID
     Indication: METASTASES TO BONE
     Dosage: 4 MG, QW4 (IF)
     Route: 065
     Dates: start: 20100205, end: 20140307
  2. BKM120 [Suspect]
     Active Substance: BUPARLISIB HYDROCHLORIDE
     Indication: BREAST CANCER METASTATIC
     Dosage: 100 MG, QD
     Route: 048
     Dates: start: 20131004, end: 20131017
  3. COMPARATOR FULVESTRANT [Suspect]
     Active Substance: FULVESTRANT
     Indication: BREAST CANCER METASTATIC
     Dosage: 500 MG, QW4
     Route: 030
     Dates: start: 20130920
  4. BKM120 [Suspect]
     Active Substance: BUPARLISIB HYDROCHLORIDE
     Dosage: 100 MG, UNK (100 MG 5 DAYS ON 2 DAYS OFF)
     Route: 048
     Dates: start: 20131129
  5. BKM120 [Suspect]
     Active Substance: BUPARLISIB HYDROCHLORIDE
     Dosage: 80 MG, QD
     Route: 048
     Dates: start: 20131022, end: 20131126

REACTIONS (1)
  - Femur fracture [Recovering/Resolving]

NARRATIVE: CASE EVENT DATE: 20140330
